FAERS Safety Report 4278004-1 (Version None)
Quarter: 2004Q1

REPORT INFORMATION
  Report Type: 
  Country: None (occurrence: None)
  Receive Date: 20040121
  Receipt Date: 20040106
  Transmission Date: 20041129
  Serious: No
  Sender: FDA-Public Use
  Company Number: A01200400038

PATIENT
  Age: 51 Year
  Sex: Male

DRUGS (8)
  1. CLOPIDOGREL BISULFATE [Suspect]
     Indication: THROMBOSIS PROPHYLAXIS
     Dosage: 300 MG, ORAL
     Route: 048
     Dates: start: 20031202, end: 20031202
  2. ENOXAPARIN SODIUM [Suspect]
     Indication: THROMBOSIS PROPHYLAXIS
     Dosage: 100 MG, SUBCUTANEOUS
     Route: 058
     Dates: start: 20031202, end: 20031202
  3. NITROGLYCERIN [Concomitant]
  4. ASPIRIN [Concomitant]
  5. METFORMI [Concomitant]
  6. PIRITON (CHLORPHENAMINE MALEATE) [Concomitant]
  7. ATENOLOL [Concomitant]
  8. AMLODIPINE BESYLATE [Concomitant]

REACTIONS (6)
  - CHILLS [None]
  - HYPERSENSITIVITY [None]
  - OBSTRUCTIVE AIRWAYS DISORDER [None]
  - ORAL PRURITUS [None]
  - PARAESTHESIA [None]
  - PRURITUS GENERALISED [None]
